FAERS Safety Report 4476574-1 (Version None)
Quarter: 2004Q4

REPORT INFORMATION
  Report Type: 
  Country: None (occurrence: None)
  Receive Date: 20041012
  Receipt Date: 20041001
  Transmission Date: 20050328
  Serious: Yes (Death, Other)
  Sender: FDA-Public Use
  Company Number: 163-20785-04100106

PATIENT

DRUGS (1)
  1. THALOMID [Suspect]
     Indication: MYELOID METAPLASIA
     Dosage: START DOSE AT 200MG FOR 1 WEEK, THEN DOSE IS INCREASED BY 50MG ON A WEEKLY BASIS AS TOLERATED., ORAL
     Route: 048
     Dates: start: 20020101

REACTIONS (4)
  - CONSTIPATION [None]
  - DISEASE PROGRESSION [None]
  - PNEUMONITIS [None]
  - WEIGHT DECREASED [None]
